FAERS Safety Report 13177790 (Version 1)
Quarter: 2017Q1

REPORT INFORMATION
  Report Type: Spontaneous
  Country: US (occurrence: US)
  Receive Date: 20170131
  Receipt Date: 20170131
  Transmission Date: 20170428
  Serious: Yes (Other)
  Sender: FDA-Public Use
  Company Number: None

PATIENT
  Age: 51 Year
  Sex: Female
  Weight: 61.29 kg

DRUGS (1)
  1. SUMAVEL DOSEPRO [Suspect]
     Active Substance: SUMATRIPTAN SUCCINATE
     Indication: MIGRAINE
     Dosage: 6 MG PRN SQ-AX SYSTEM
     Route: 058
     Dates: start: 201503, end: 201603

REACTIONS (2)
  - Migraine [None]
  - Device failure [None]

NARRATIVE: CASE EVENT DATE: 20160326
